FAERS Safety Report 5868764-8 (Version None)
Quarter: 2008Q3

REPORT INFORMATION
  Report Type: 
  Country: None (occurrence: None)
  Receive Date: 20080902
  Receipt Date: 20080902
  Transmission Date: 20090109
  Serious: Yes (Other)
  Sender: FDA-Public Use
  Company Number: None

PATIENT
  Sex: Female
  Weight: 48.8 kg

DRUGS (1)
  1. SORAFENIB 200MG BAYER [Suspect]
     Indication: ANAPLASTIC ASTROCYTOMA
     Dosage: 200MG 2X/DAY PO
     Route: 048
     Dates: start: 20080518, end: 20080626

REACTIONS (2)
  - PLATELET COUNT DECREASED [None]
  - THERAPEUTIC AGENT TOXICITY [None]
